FAERS Safety Report 7254165-7 (Version None)
Quarter: 2011Q1

REPORT INFORMATION
  Report Type: 
  Country: None (occurrence: None)
  Receive Date: 20110129
  Receipt Date: 20100209
  Transmission Date: 20110831
  Serious: No
  Sender: FDA-Public Use
  Company Number: US-ABBOTT-10P-163-0625923-00

PATIENT
  Sex: Female
  Weight: 48.578 kg

DRUGS (2)
  1. HUMIRA [Suspect]
     Indication: CROHN'S DISEASE
     Dosage: 80 MG 1ST DOSE
     Route: 058
     Dates: start: 20100206, end: 20100206
  2. HUMIRA [Suspect]

REACTIONS (2)
  - CHOKING SENSATION [None]
  - OROPHARYNGEAL PAIN [None]
